FAERS Safety Report 6163493-8 (Version None)
Quarter: 2009Q2

REPORT INFORMATION
  Report Type: 
  Country: None (occurrence: None)
  Receive Date: 20090420
  Receipt Date: 20090420
  Transmission Date: 20091009
  Serious: Yes (Other)
  Sender: FDA-Public Use
  Company Number: None

PATIENT
  Sex: Male
  Weight: 95.2554 kg

DRUGS (1)
  1. DIGOXIN [Suspect]
     Indication: CARDIAC FAILURE
     Dosage: 0.125 MG ONCE A DAY PO
     Route: 048
     Dates: start: 20040119, end: 20090413

REACTIONS (3)
  - BRADYCARDIA [None]
  - DIZZINESS [None]
  - NAUSEA [None]
